FAERS Safety Report 11232835 (Version 1)
Quarter: 2015Q3

REPORT INFORMATION
  Report Type: Spontaneous
  Country: IN (occurrence: IN)
  Receive Date: 20150701
  Receipt Date: 20150701
  Transmission Date: 20151125
  Serious: Yes (Death, Hospitalization)
  Sender: FDA-Public Use
  Company Number: IN-PFIZER INC-2015204024

PATIENT
  Age: 57 Year
  Sex: Female

DRUGS (1)
  1. AROMASIN [Suspect]
     Active Substance: EXEMESTANE
     Indication: BREAST CANCER METASTATIC
     Dosage: 25 MG, 1X/DAY
     Route: 048
     Dates: start: 201401

REACTIONS (4)
  - Disease progression [Fatal]
  - Fall [Unknown]
  - Eating disorder [Unknown]
  - Breast cancer metastatic [Fatal]

NARRATIVE: CASE EVENT DATE: 201410
